FAERS Safety Report 19630969 (Version 3)
Quarter: 2021Q3

REPORT INFORMATION
  Report Type: Report from Study
  Country: BR (occurrence: BR)
  Receive Date: 20210729
  Receipt Date: 20210929
  Transmission Date: 20211014
  Serious: Yes (Hospitalization, Other)
  Sender: FDA-Public Use
  Company Number: BR-AMGEN-BRASL2021114971

PATIENT
  Age: 5 Year
  Sex: Male
  Weight: 18.9 kg

DRUGS (4)
  1. BLINCYTO [Suspect]
     Active Substance: BLINATUMOMAB
     Indication: B PRECURSOR TYPE ACUTE LEUKAEMIA
     Dosage: 15 MICROGRAM/SQ. METER, QD
     Route: 042
     Dates: start: 20210719, end: 20210720
  2. BLINCYTO [Suspect]
     Active Substance: BLINATUMOMAB
     Dosage: 15 MICROGRAM/SQ. METER, QD
     Route: 042
     Dates: start: 202108, end: 20210819
  3. BLINCYTO [Suspect]
     Active Substance: BLINATUMOMAB
     Dosage: 15 MICROGRAM/SQ. METER, QD
     Route: 042
     Dates: start: 202107, end: 20210816
  4. BLINCYTO [Suspect]
     Active Substance: BLINATUMOMAB
     Indication: MINIMAL RESIDUAL DISEASE
     Dosage: 5 MICROGRAM/SQ. METER, QD
     Route: 042
     Dates: start: 20210722, end: 202107

REACTIONS (6)
  - Tremor [Recovered/Resolved]
  - Speech disorder [Recovered/Resolved]
  - Neurological symptom [Recovered/Resolved]
  - Ataxia [Recovered/Resolved]
  - Balance disorder [Recovered/Resolved]
  - Muscle strength abnormal [Recovered/Resolved]

NARRATIVE: CASE EVENT DATE: 202107
